FAERS Safety Report 8610266-X (Version None)
Quarter: 2012Q3

REPORT INFORMATION
  Report Type: 
  Country: None (occurrence: None)
  Receive Date: 20120810
  Receipt Date: 20120810
  Transmission Date: 20120928
  Serious: Yes (Other)
  Sender: FDA-Public Use
  Company Number: None

PATIENT
  Age: 30 Year
  Sex: Female
  Weight: 106.5953 kg

DRUGS (1)
  1. NUVARING [Suspect]
     Dates: start: 20090701, end: 20101119

REACTIONS (3)
  - DEEP VEIN THROMBOSIS [None]
  - SUPERIOR VENA CAVA SYNDROME [None]
  - NON-HODGKIN'S LYMPHOMA [None]
